FAERS Safety Report 24867129 (Version 1)
Quarter: 2025Q1

REPORT INFORMATION
  Report Type: Spontaneous
  Country: US (occurrence: US)
  Receive Date: 20250121
  Receipt Date: 20250121
  Transmission Date: 20250409
  Serious: Yes (Hospitalization, Other)
  Sender: ALEMBIC
  Company Number: US-ALEMBIC PHARMACUETICALS LIMITED-2025SCAL000018

PATIENT

DRUGS (1)
  1. DOXYCYCLINE [Suspect]
     Active Substance: DOXYCYCLINE
     Indication: Product used for unknown indication
     Route: 065

REACTIONS (9)
  - Fixed eruption [Recovering/Resolving]
  - Dermatitis bullous [Recovering/Resolving]
  - Stevens-Johnson syndrome [Recovering/Resolving]
  - Epidermal necrosis [Recovering/Resolving]
  - Blood creatinine increased [Recovering/Resolving]
  - Skin hyperpigmentation [Recovering/Resolving]
  - Mucosal inflammation [Recovering/Resolving]
  - Blood urea increased [Recovering/Resolving]
  - Discomfort [Recovering/Resolving]
